FAERS Safety Report 4622255-0 (Version None)
Quarter: 2005Q1

REPORT INFORMATION
  Report Type: 
  Country: None (occurrence: None)
  Receive Date: 20050330
  Receipt Date: 20050221
  Transmission Date: 20050727
  Serious: Yes (Death, Hospitalization)
  Sender: FDA-Public Use
  Company Number: FR-RB-1340-2005

PATIENT
  Age: 35 Year
  Sex: Male

DRUGS (1)
  1. BUPRENORPHINE HCL [Suspect]
     Indication: DRUG USE FOR UNKNOWN INDICATION
     Dosage: UNKNOWN DOSAGE
     Route: 042

REACTIONS (10)
  - CARDIAC ARREST [None]
  - COAGULOPATHY [None]
  - DEATH [None]
  - DIALYSIS [None]
  - HYPERKALAEMIA [None]
  - INTENTIONAL MISUSE [None]
  - NECROTISING FASCIITIS [None]
  - OLIGURIA [None]
  - RHABDOMYOLYSIS [None]
  - SEPSIS [None]
